FAERS Safety Report 10151906 (Version 1)
Quarter: 2014Q2

REPORT INFORMATION
  Report Type: Report from Study
  Country: CA (occurrence: CA)
  Receive Date: 20140505
  Receipt Date: 20140505
  Transmission Date: 20141212
  Serious: Yes (Other)
  Sender: FDA-Public Use
  Company Number: CA-JNJFOC-20140419977

PATIENT
  Age: 44 Year
  Sex: Male
  Weight: 127.5 kg

DRUGS (2)
  1. REMICADE [Suspect]
     Indication: PSORIATIC ARTHROPATHY
     Route: 042
     Dates: start: 20081215
  2. NICODERM [Concomitant]
     Route: 065

REACTIONS (1)
  - Diverticulitis [Recovered/Resolved]
